FAERS Safety Report 5754998-X (Version None)
Quarter: 2008Q2

REPORT INFORMATION
  Report Type: 
  Country: None (occurrence: None)
  Receive Date: 20080527
  Receipt Date: 20080513
  Transmission Date: 20081010
  Serious: Yes (Death, Hospitalization)
  Sender: FDA-Public Use
  Company Number: 430013L06USA

PATIENT
  Age: 64 Year
  Sex: Male

DRUGS (2)
  1. NOVANTRONE [Suspect]
     Indication: PROSTATE CANCER
     Dates: start: 20030410, end: 20030729
  2. PREDNISONE [Suspect]
     Dosage: 5 MG,  2 IN 1 DAYS, ORAL
     Route: 048

REACTIONS (10)
  - ABDOMINAL PAIN [None]
  - ACUTE MYELOID LEUKAEMIA [None]
  - GENERAL PHYSICAL HEALTH DETERIORATION [None]
  - HYPOTENSION [None]
  - LUNG INFILTRATION [None]
  - MALAISE [None]
  - MULTI-ORGAN FAILURE [None]
  - NAUSEA [None]
  - OPPORTUNISTIC INFECTION [None]
  - RENAL FAILURE [None]
